FAERS Safety Report 7797417-4 (Version None)
Quarter: 2011Q4

REPORT INFORMATION
  Report Type: 
  Country: None (occurrence: None)
  Receive Date: 20111003
  Receipt Date: 20110922
  Transmission Date: 20120403
  Serious: Yes (Death)
  Sender: FDA-Public Use
  Company Number: 2011P1009037

PATIENT
  Sex: Male

DRUGS (2)
  1. ALBENDAZOLE (NO PREF. NAME) [Suspect]
     Indication: STRONGYLOIDIASIS
     Dosage: PO; RTL
     Route: 048
  2. IVERMECTIN [Concomitant]

REACTIONS (6)
  - GASTROINTESTINAL DISORDER [None]
  - SEPSIS [None]
  - ILEUS PARALYTIC [None]
  - DRUG INEFFECTIVE [None]
  - DRUG INTOLERANCE [None]
  - MENINGITIS [None]
